FAERS Safety Report 12472979 (Version 1)
Quarter: 2016Q2

REPORT INFORMATION
  Report Type: Spontaneous
  Country: HU (occurrence: HU)
  Receive Date: 20160616
  Receipt Date: 20160616
  Transmission Date: 20160815
  Serious: Yes (Death, Other)
  Sender: FDA-Public Use
  Company Number: HU-BAYER-2016-112378

PATIENT
  Age: 40 Year
  Sex: Male

DRUGS (1)
  1. STIVARGA [Suspect]
     Active Substance: REGORAFENIB
     Indication: GASTROINTESTINAL STROMAL CANCER
     Dosage: UNK
     Dates: start: 20150119, end: 20150405

REACTIONS (1)
  - Gastrointestinal stromal cancer [Fatal]

NARRATIVE: CASE EVENT DATE: 201504
